FAERS Safety Report 15780392 (Version 1)
Quarter: 2019Q1

REPORT INFORMATION
  Report Type: Spontaneous
  Country: PT (occurrence: PT)
  Receive Date: 20190102
  Receipt Date: 20190102
  Transmission Date: 20190417
  Serious: Yes (Other)
  Sender: FDA-Public Use
  Company Number: PT-TEVA-2018-PT-993048

PATIENT
  Age: 30 Year
  Sex: Female
  Weight: 74 kg

DRUGS (3)
  1. TOPIRAMATO CICLUM [Suspect]
     Active Substance: TOPIRAMATE
     Indication: MIGRAINE
     Dosage: 25 MILLIGRAM DAILY; 25 MG, 1 CMP AT NIGHT
     Route: 048
     Dates: start: 20181208
  2. TRITICUM AC [Concomitant]
     Route: 048
  3. SIBILLA [Concomitant]
     Active Substance: DIENOGEST\ETHINYL ESTRADIOL
     Route: 048

REACTIONS (4)
  - Skin ulcer [Not Recovered/Not Resolved]
  - Product substitution issue [Not Recovered/Not Resolved]
  - Pruritus [Not Recovered/Not Resolved]
  - Rash papular [Not Recovered/Not Resolved]

NARRATIVE: CASE EVENT DATE: 20181209
